FAERS Safety Report 4283413-0 (Version None)
Quarter: 2004Q1

REPORT INFORMATION
  Report Type: 
  Country: None (occurrence: None)
  Receive Date: 20040129
  Receipt Date: 20040129
  Transmission Date: 20041129
  Serious: Yes (Hospitalization)
  Sender: FDA-Public Use
  Company Number: None

PATIENT
  Age: 74 Year
  Sex: Male
  Weight: 77.1 kg

DRUGS (7)
  1. LEVOFLOXACIN [Suspect]
     Indication: PNEUMONIA
     Dosage: 500 MG PO QD
     Route: 048
     Dates: end: 20031104
  2. PRINIVIL [Concomitant]
  3. DARVOCET [Concomitant]
  4. GLYBURIDE [Concomitant]
  5. GLUCAGON [Concomitant]
  6. XALATAN [Concomitant]
  7. TIMOLOL MALEATE [Concomitant]

REACTIONS (4)
  - GRAND MAL CONVULSION [None]
  - MEDICATION ERROR [None]
  - PULMONARY EMBOLISM [None]
  - VOMITING [None]
